FAERS Safety Report 4780273-6 (Version None)
Quarter: 2005Q3

REPORT INFORMATION
  Report Type: 
  Country: None (occurrence: None)
  Receive Date: 20050927
  Receipt Date: 20050917
  Transmission Date: 20060218
  Serious: Yes (Other)
  Sender: FDA-Public Use
  Company Number: US-ROCHE-418361

PATIENT
  Sex: Female

DRUGS (2)
  1. PEGASYS [Suspect]
     Indication: HEPATITIS C
     Dosage: ROUTE: INJ
     Route: 050
     Dates: end: 20050615
  2. COPEGUS [Suspect]
     Indication: HEPATITIS C
     Route: 048
     Dates: end: 20050615

REACTIONS (4)
  - HEPATITIS C [None]
  - LUNG NEOPLASM [None]
  - SYSTEMIC LUPUS ERYTHEMATOSUS [None]
  - THYROID DISORDER [None]
